FAERS Safety Report 7258159-7 (Version None)
Quarter: 2011Q1

REPORT INFORMATION
  Report Type: 
  Country: None (occurrence: None)
  Receive Date: 20110129
  Receipt Date: 20100701
  Transmission Date: 20110831
  Serious: No
  Sender: FDA-Public Use
  Company Number: US-ABBOTT-10P-163-0655738-00

PATIENT
  Sex: Female
  Weight: 99.88 kg

DRUGS (3)
  1. HUMIRA [Suspect]
     Dosage: ONCE
     Dates: start: 20100626, end: 20100626
  2. HUMIRA [Suspect]
     Indication: CROHN'S DISEASE
     Dosage: ONCE
     Dates: start: 20100625, end: 20100625
  3. PREDNISONE [Concomitant]
     Indication: CROHN'S DISEASE
     Dosage: TWICE DAILY OFF AND ON

REACTIONS (1)
  - ARTHRALGIA [None]
